FAERS Safety Report 7115567-2 (Version None)
Quarter: 2010Q4

REPORT INFORMATION
  Report Type: 
  Country: None (occurrence: None)
  Receive Date: 20101122
  Receipt Date: 20101110
  Transmission Date: 20110411
  Serious: Yes (Other)
  Sender: FDA-Public Use
  Company Number: US-PFIZER INC-2010041807

PATIENT
  Sex: Female

DRUGS (1)
  1. SUTENT [Suspect]
     Indication: RENAL CELL CARCINOMA
     Dosage: 37.5 MG, 1X/DAY, 4-2 CYCLE (FOR 28 DAYS EVERY 42 DAYS)
     Route: 048
     Dates: start: 20100310

REACTIONS (3)
  - ORAL PAIN [None]
  - PLEURAL EFFUSION [None]
  - TONGUE DISORDER [None]
